FAERS Safety Report 9163913 (Version 1)
Quarter: 2013Q1

REPORT INFORMATION
  Report Type: Spontaneous
  Country: US (occurrence: US)
  Receive Date: 20130314
  Receipt Date: 20130314
  Transmission Date: 20140127
  Serious: No
  Sender: FDA-Public Use
  Company Number: US-TEVA-392128USA

PATIENT
  Sex: 0

DRUGS (1)
  1. COPAXONE [Suspect]
     Indication: RELAPSING-REMITTING MULTIPLE SCLEROSIS
     Dates: start: 201202, end: 201210

REACTIONS (2)
  - Headache [Recovered/Resolved]
  - Drug hypersensitivity [Unknown]
